FAERS Safety Report 7281197-5 (Version None)
Quarter: 2011Q1

REPORT INFORMATION
  Report Type: 
  Country: None (occurrence: None)
  Receive Date: 20110208
  Receipt Date: 20110126
  Transmission Date: 20110831
  Serious: Yes (Death, Hospitalization, Other)
  Sender: FDA-Public Use
  Company Number: CA-CELGENEUS-028-21880-09101563

PATIENT
  Sex: Female

DRUGS (3)
  1. REVLIMID [Suspect]
     Indication: MULTIPLE MYELOMA
     Route: 048
     Dates: start: 20090803, end: 20091012
  2. CORTICOSTEROID [Concomitant]
     Indication: SKIN LESION
     Route: 061
  3. DEXAMETHASONE [Concomitant]
     Route: 065

REACTIONS (3)
  - PANCYTOPENIA [None]
  - MULTIPLE MYELOMA [None]
  - PNEUMONIA [None]
